FAERS Safety Report 7781761-0 (Version None)
Quarter: 2011Q3

REPORT INFORMATION
  Report Type: 
  Country: None (occurrence: None)
  Receive Date: 20110927
  Receipt Date: 20110920
  Transmission Date: 20111222
  Serious: Yes (Other)
  Sender: FDA-Public Use
  Company Number: US-GLAXOSMITHKLINE-A0937515A

PATIENT
  Age: 66 Year
  Sex: Female

DRUGS (2)
  1. VENTOLIN HFA [Suspect]
     Route: 065
     Dates: start: 19910301
  2. ADVAIR DISKUS 100/50 [Suspect]
     Route: 065
     Dates: start: 19910301

REACTIONS (3)
  - DRUG ADMINISTRATION ERROR [None]
  - EXPIRED DRUG ADMINISTERED [None]
  - PNEUMONIA [None]
